FAERS Safety Report 4288529-0 (Version None)
Quarter: 2004Q1

REPORT INFORMATION
  Report Type: 
  Country: None (occurrence: None)
  Receive Date: 20040205
  Receipt Date: 20040128
  Transmission Date: 20041129
  Serious: Yes (Hospitalization)
  Sender: FDA-Public Use
  Company Number: 2004196418ES

PATIENT
  Age: 59 Year
  Sex: Female

DRUGS (1)
  1. ALDACTONE [Suspect]
     Dosage: 100 MG, QD, ORAL
     Route: 048
     Dates: start: 20030718, end: 20031105

REACTIONS (3)
  - ALANINE AMINOTRANSFERASE INCREASED [None]
  - ASPARTATE AMINOTRANSFERASE INCREASED [None]
  - BLOOD ALKALINE PHOSPHATASE INCREASED [None]
